FAERS Safety Report 5048768-8 (Version None)
Quarter: 2006Q3

REPORT INFORMATION
  Report Type: 
  Country: None (occurrence: None)
  Receive Date: 20060706
  Receipt Date: 20060627
  Transmission Date: 20061208
  Serious: Yes (Hospitalization, Other)
  Sender: FDA-Public Use
  Company Number: 14239

PATIENT
  Age: 57 Year
  Sex: Female
  Weight: 112 kg

DRUGS (4)
  1. ANZATAX [Suspect]
     Indication: BREAST CANCER METASTATIC
     Dosage: 160 MG IV
     Route: 042
     Dates: end: 20060609
  2. ZOFRAN [Concomitant]
  3. DEXAMETHASONE TAB [Concomitant]
  4. GEMZAR [Concomitant]

REACTIONS (9)
  - BACK PAIN [None]
  - CARDIO-RESPIRATORY ARREST [None]
  - CHEST PAIN [None]
  - COLD SWEAT [None]
  - DYSPNOEA [None]
  - FLUSHING [None]
  - HYPERHIDROSIS [None]
  - HYPERTENSION [None]
  - TACHYCARDIA [None]
